FAERS Safety Report 25567871 (Version 1)
Quarter: 2025Q3

REPORT INFORMATION
  Report Type: Report from Study
  Country: US (occurrence: US)
  Receive Date: 20250716
  Receipt Date: 20250716
  Transmission Date: 20251021
  Serious: Yes (Hospitalization)
  Sender: ROCHE
  Company Number: US-ROCHE-2350359

PATIENT
  Age: 56 Year
  Sex: Male
  Weight: 117.93 kg

DRUGS (4)
  1. RITUXAN [Suspect]
     Active Substance: RITUXIMAB
     Indication: Polymyositis
     Route: 042
     Dates: start: 201804
  2. CELLCEPT [Suspect]
     Active Substance: MYCOPHENOLATE MOFETIL
     Indication: Polymyositis
     Route: 065
     Dates: start: 202001
  3. CELEBREX [Concomitant]
     Active Substance: CELECOXIB
     Indication: Arthralgia
     Route: 048
     Dates: start: 201811
  4. PREDNISONE [Concomitant]
     Active Substance: PREDNISONE
     Indication: Polymyositis
     Route: 048
     Dates: start: 2015

REACTIONS (6)
  - Off label use [Unknown]
  - Pain [Not Recovered/Not Resolved]
  - Asthma [Unknown]
  - Insomnia [Unknown]
  - Inflammatory marker increased [Recovered/Resolved]
  - Respiratory tract infection [Recovered/Resolved]
